FAERS Safety Report 7941256-8 (Version None)
Quarter: 2011Q4

REPORT INFORMATION
  Report Type: 
  Country: None (occurrence: None)
  Receive Date: 20111128
  Receipt Date: 20111122
  Transmission Date: 20120403
  Serious: Yes (Other)
  Sender: FDA-Public Use
  Company Number: ES-PFIZER INC-2011285293

PATIENT
  Age: 75 Year
  Sex: Male

DRUGS (1)
  1. ECALTA [Suspect]
     Indication: CANDIDIASIS
     Dosage: UNK
     Route: 042
     Dates: start: 20110421, end: 20110421

REACTIONS (1)
  - RESPIRATORY FAILURE [None]
